FAERS Safety Report 8797033 (Version 2)
Quarter: 2012Q4

REPORT INFORMATION
  Report Type: 
  Country: US (occurrence: US)
  Receive Date: 20120920
  Receipt Date: 20121015
  Transmission Date: 20130627
  Serious: Yes (Hospitalization, Other)
  Sender: FDA-Public Use
  Company Number: US-ASTELLAS-2012US007106

PATIENT
  Sex: Male

DRUGS (4)
  1. PROGRAF [Suspect]
     Indication: OBLITERATIVE BRONCHIOLITIS
     Dosage: 3 mg, bid
     Route: 048
  2. PROGRAF [Suspect]
     Indication: IDIOPATHIC PULMONARY FIBROSIS
  3. CELLCEPT                           /01275102/ [Concomitant]
     Indication: OBLITERATIVE BRONCHIOLITIS
     Dosage: UNK
     Route: 065
  4. PREDNISONE [Concomitant]
     Indication: OBLITERATIVE BRONCHIOLITIS
     Dosage: UNK
     Route: 065

REACTIONS (3)
  - Off label use [Unknown]
  - Sinus operation [Unknown]
  - Pneumonia [Recovered/Resolved]
